FAERS Safety Report 6280595-6 (Version None)
Quarter: 2009Q3

REPORT INFORMATION
  Report Type: 
  Country: None (occurrence: None)
  Receive Date: 20090724
  Receipt Date: 20080912
  Transmission Date: 20100115
  Serious: Yes (Hospitalization)
  Sender: FDA-Public Use
  Company Number: A0748429A

PATIENT
  Sex: Male
  Weight: 113.6 kg

DRUGS (2)
  1. AVANDIA [Suspect]
     Route: 048
     Dates: start: 20000101, end: 20010101
  2. ARTHRITIS MEDICATION [Concomitant]

REACTIONS (1)
  - CARDIAC DISORDER [None]
